FAERS Safety Report 7928704 (Version 4)
Quarter: 2012Q4

REPORT INFORMATION
  Report Type: 
  Country: US (occurrence: US)
  Receive Date: 20110503
  Receipt Date: 20121026
  Transmission Date: 20130627
  Serious: Yes (Hospitalization, Other)
  Sender: FDA-Public Use
  Company Number: US-009507513-1104USA03264

PATIENT

DRUGS (9)
  1. FOSAMAX [Suspect]
     Indication: OSTEOPENIA
     Dosage: 10 mg, UNK
     Route: 048
     Dates: start: 19970116
  2. FOSAMAX [Suspect]
     Indication: OSTEOPOROSIS
     Dosage: 70 mg qw
     Route: 048
     Dates: start: 20010213, end: 20080417
  3. ALENDRONATE SODIUM [Suspect]
     Indication: OSTEOPENIA
     Dosage: 70 mg, qw
     Route: 048
     Dates: start: 20080417, end: 200906
  4. ALENDRONATE SODIUM [Suspect]
     Indication: OSTEOPOROSIS
  5. ASCORBIC ACID [Concomitant]
     Indication: OSTEOPENIA
     Dosage: 500 mg, qd
     Dates: start: 1997
  6. VITAMINS (UNSPECIFIED) [Concomitant]
     Dosage: UNK
     Dates: start: 1982
  7. VITAMIN D (UNSPECIFIED) [Concomitant]
     Indication: OSTEOPENIA
     Dosage: 800 UNK, UNK
     Dates: start: 1986
  8. CALCIUM CITRATE (+) CHOLECALCIFEROL [Concomitant]
     Indication: OSTEOPENIA
     Dosage: 1000 mg, UNK
     Dates: start: 1986, end: 2012
  9. ESTROGENS (UNSPECIFIED) [Concomitant]
     Dosage: UNK
     Dates: start: 1986, end: 200604

REACTIONS (66)
  - Intramedullary rod insertion [Unknown]
  - Intramedullary rod insertion [Unknown]
  - Breast cancer stage I [Unknown]
  - Squamous cell carcinoma [Unknown]
  - Bladder neck suspension [Unknown]
  - Spinal decompression [Unknown]
  - Breast lump removal [Unknown]
  - Surgery [Unknown]
  - Malignant breast lump removal [Unknown]
  - Femur fracture [Unknown]
  - Femur fracture [Unknown]
  - Biopsy bone [Unknown]
  - Hypertension [Unknown]
  - Adverse event [Unknown]
  - Osteoarthritis [Unknown]
  - Anxiety [Unknown]
  - Bronchitis [Unknown]
  - Scoliosis [Unknown]
  - Nasopharyngitis [Unknown]
  - Nasopharyngitis [Unknown]
  - Spondylolisthesis [Unknown]
  - Lumbar spinal stenosis [Unknown]
  - Spinal osteoarthritis [Unknown]
  - Hyperreflexia [Unknown]
  - Intervertebral disc degeneration [Unknown]
  - Benign breast neoplasm [Unknown]
  - Venous insufficiency [Unknown]
  - Lymphoedema [Unknown]
  - Tendonitis [Unknown]
  - Blood cholesterol increased [Unknown]
  - Weight increased [Unknown]
  - Dyspnoea [Unknown]
  - Dysphonia [Unknown]
  - Vulvovaginal dryness [Unknown]
  - Seborrhoeic keratosis [Unknown]
  - Chills [Unknown]
  - Body height decreased [Unknown]
  - Abnormal loss of weight [Unknown]
  - Seborrhoeic keratosis [Unknown]
  - Acquired oesophageal web [Unknown]
  - Hiatus hernia [Unknown]
  - Deformity [Unknown]
  - High density lipoprotein decreased [Unknown]
  - Joint crepitation [Unknown]
  - Hypokalaemia [Unknown]
  - Bursitis [Unknown]
  - Iliotibial band syndrome [Unknown]
  - Radiculopathy [Unknown]
  - Foot deformity [Unknown]
  - Polyarthritis [Unknown]
  - Malaise [Unknown]
  - Malaise [Unknown]
  - Pain in extremity [Unknown]
  - Gastrooesophageal reflux disease [Unknown]
  - Rash [Unknown]
  - Muscle spasms [Unknown]
  - Constipation [Unknown]
  - Musculoskeletal discomfort [Unknown]
  - Oesophageal stenosis [Unknown]
  - Dysphagia [Unknown]
  - Nausea [Unknown]
  - Oedema peripheral [Not Recovered/Not Resolved]
  - Muscle spasms [Unknown]
  - Gastric ulcer [Not Recovered/Not Resolved]
  - Pain in extremity [Unknown]
  - Drug ineffective [Unknown]
